FAERS Safety Report 10161287 (Version 2)
Quarter: 2014Q2

REPORT INFORMATION
  Report Type: Spontaneous
  Country: US (occurrence: US)
  Receive Date: 20140508
  Receipt Date: 20140512
  Transmission Date: 20141212
  Serious: No
  Sender: FDA-Public Use
  Company Number: US-GILEAD-2014-0101872

PATIENT
  Sex: Female

DRUGS (3)
  1. LETAIRIS [Suspect]
     Indication: PRODUCT USED FOR UNKNOWN INDICATION
     Dosage: 5 MG, QD
     Route: 065
     Dates: start: 20140501
  2. VELETRI [Concomitant]
  3. XARELTO [Concomitant]

REACTIONS (4)
  - Oedema [Unknown]
  - Oedema peripheral [Unknown]
  - Weight increased [Unknown]
  - Dyspnoea [Unknown]
